FAERS Safety Report 12269367 (Version 1)
Quarter: 2016Q2

REPORT INFORMATION
  Report Type: Spontaneous
  Country: US (occurrence: US)
  Receive Date: 20160414
  Receipt Date: 20160414
  Transmission Date: 20160815
  Serious: No
  Sender: FDA-Public Use
  Company Number: ADR-2013-02243

PATIENT
  Age: 41 Year
  Sex: Female

DRUGS (4)
  1. BACLOFEN. [Suspect]
     Active Substance: BACLOFEN
     Route: 048
  2. SALINE [Suspect]
     Active Substance: SODIUM CHLORIDE
     Route: 037
     Dates: start: 201312
  3. LIORESAL [Suspect]
     Active Substance: BACLOFEN
     Dosage: 340MCG/DAY
     Route: 037
     Dates: end: 201312
  4. BACLOFEN. [Suspect]
     Active Substance: BACLOFEN
     Dosage: 199 MCG/DAY
     Route: 037

REACTIONS (17)
  - Incontinence [Recovered/Resolved]
  - Constipation [Recovered/Resolved]
  - Movement disorder [Unknown]
  - Pain [Recovered/Resolved]
  - Lethargy [Recovered/Resolved]
  - Asthenia [Recovered/Resolved]
  - Gait disturbance [Recovered/Resolved]
  - Menstrual disorder [Recovered/Resolved]
  - Overdose [Recovered/Resolved]
  - Urinary incontinence [Recovered/Resolved]
  - Performance status decreased [Recovered/Resolved]
  - Muscle tightness [Recovered/Resolved]
  - Incorrect dose administered [Recovered/Resolved]
  - Somnolence [Recovered/Resolved]
  - Unevaluable event [Recovered/Resolved]
  - Diarrhoea [Recovered/Resolved]
  - Acne [Recovered/Resolved]

NARRATIVE: CASE EVENT DATE: 2012
